FAERS Safety Report 7315430-8 (Version None)
Quarter: 2011Q1

REPORT INFORMATION
  Report Type: 
  Country: None (occurrence: None)
  Receive Date: 20110225
  Receipt Date: 20110218
  Transmission Date: 20110831
  Serious: Yes (Death, Hospitalization)
  Sender: FDA-Public Use
  Company Number: B0697876A

PATIENT
  Sex: Female

DRUGS (4)
  1. DEPAKENE [Concomitant]
     Dosage: 800MG PER DAY
     Route: 048
  2. LAMICTAL [Suspect]
     Indication: EPILEPSY
     Dosage: 50MG PER DAY
     Route: 048
     Dates: start: 20100615, end: 20100723
  3. EXCEGRAN [Concomitant]
     Dosage: 200MG PER DAY
     Route: 048
  4. ANPLAG [Concomitant]
     Dosage: 300MG PER DAY
     Route: 048

REACTIONS (4)
  - URINARY TRACT INFECTION [None]
  - STEVENS-JOHNSON SYNDROME [None]
  - DISSEMINATED INTRAVASCULAR COAGULATION [None]
  - PNEUMONIA [None]
